FAERS Safety Report 4309710-8 (Version None)
Quarter: 2004Q1

REPORT INFORMATION
  Report Type: 
  Country: None (occurrence: None)
  Receive Date: 20040301
  Receipt Date: 20040219
  Transmission Date: 20041129
  Serious: Yes (Other)
  Sender: FDA-Public Use
  Company Number: 200410614GDS

PATIENT
  Sex: Male

DRUGS (2)
  1. LEVITRA [Suspect]
     Indication: ERECTILE DYSFUNCTION
     Dosage: 20 MG, TOTAL DAILY; ORAL, 10 MG TOTAL DAILY; ORAL
     Route: 048
  2. ERGOTAMINE [Suspect]
     Indication: MIGRAINE
     Dosage: NI, NI, UNK
     Route: 065

REACTIONS (2)
  - DRUG INTERACTION [None]
  - ISCHAEMIC STROKE [None]
